FAERS Safety Report 24873827 (Version 2)
Quarter: 2025Q1

REPORT INFORMATION
  Report Type: Spontaneous
  Country: AE (occurrence: AE)
  Receive Date: 20250122
  Receipt Date: 20250128
  Transmission Date: 20250409
  Serious: Yes (Hospitalization)
  Sender: AMGEN
  Company Number: AE-AMGEN-ARESP2025009474

PATIENT
  Age: 70 Year
  Sex: Female

DRUGS (2)
  1. PROLIA [Suspect]
     Active Substance: DENOSUMAB
     Indication: Osteoporosis
     Dosage: 60 MILLIGRAM, Q6MO
     Route: 065
     Dates: start: 2024
  2. PROLIA [Suspect]
     Active Substance: DENOSUMAB
     Indication: Bone density decreased

REACTIONS (2)
  - Renal failure [Unknown]
  - Hypocalcaemia [Unknown]
